FAERS Safety Report 7783937-5 (Version None)
Quarter: 2011Q3

REPORT INFORMATION
  Report Type: 
  Country: None (occurrence: None)
  Receive Date: 20110928
  Receipt Date: 20110916
  Transmission Date: 20111222
  Serious: Yes (Congenital Anomaly, Other)
  Sender: FDA-Public Use
  Company Number: US-TEVA-300581USA

PATIENT
  Sex: Female

DRUGS (2)
  1. PLAN B ONE-STEP [Suspect]
     Route: 065
  2. PLAN B ONE-STEP [Suspect]
     Dosage: 1.5 MILLIGRAM;
     Route: 048

REACTIONS (3)
  - MATERNAL EXPOSURE DURING PREGNANCY [None]
  - FOETAL HEART RATE DISORDER [None]
  - CONGENITAL ORAL MALFORMATION [None]
